FAERS Safety Report 5563503-2 (Version None)
Quarter: 2007Q4

REPORT INFORMATION
  Report Type: 
  Country: None (occurrence: None)
  Receive Date: 20071217
  Receipt Date: 20070608
  Transmission Date: 20080405
  Serious: No
  Sender: FDA-Public Use
  Company Number: US-ASTRAZENECA-2007UW13831

PATIENT
  Age: 44 Year
  Sex: Female
  Weight: 47.6 kg

DRUGS (3)
  1. CRESTOR [Suspect]
     Indication: BLOOD CHOLESTEROL INCREASED
     Route: 048
     Dates: start: 20070606
  2. LORAZEPAM [Concomitant]
  3. METOPROLOL [Concomitant]
     Route: 048

REACTIONS (3)
  - ASTHENIA [None]
  - CHOKING SENSATION [None]
  - FATIGUE [None]
